FAERS Safety Report 7075673-8 (Version None)
Quarter: 2010Q4

REPORT INFORMATION
  Report Type: 
  Country: None (occurrence: None)
  Receive Date: 20101031
  Receipt Date: 20101028
  Transmission Date: 20110411
  Serious: Yes (Hospitalization, Other)
  Sender: FDA-Public Use
  Company Number: US-WYE-H18437310

PATIENT
  Sex: Female
  Weight: 77.18 kg

DRUGS (8)
  1. PRISTIQ [Suspect]
     Indication: DEPRESSION
  2. PRISTIQ [Suspect]
  3. VITAMIN D [Concomitant]
     Dosage: UNKNOWN
  4. COLACE [Concomitant]
     Dosage: UNKNOWN
  5. METOPROLOL [Suspect]
     Indication: HEART RATE INCREASED
     Dates: start: 20101019
  6. LORAZEPAM [Concomitant]
     Indication: ANXIETY
     Dosage: 0.5 MG, AS NEEDED
  7. ACETYLSALICYLIC ACID SRT [Concomitant]
     Dosage: UNKNOWN
  8. LISINOPRIL [Suspect]
     Indication: HYPERTENSION
     Dates: start: 20100101

REACTIONS (7)
  - COLITIS ISCHAEMIC [None]
  - CONDITION AGGRAVATED [None]
  - DEPRESSION [None]
  - DIARRHOEA [None]
  - DRUG EFFECT DECREASED [None]
  - HEART RATE INCREASED [None]
  - HYPERTENSION [None]
